FAERS Safety Report 4827704-0 (Version None)
Quarter: 2005Q4

REPORT INFORMATION
  Report Type: 
  Country: None (occurrence: None)
  Receive Date: 20051114
  Receipt Date: 20051004
  Transmission Date: 20060501
  Serious: Yes (Hospitalization, Disabling, Other)
  Sender: FDA-Public Use
  Company Number: US-MERCK-0510USA02217

PATIENT
  Age: 47 Year
  Sex: Male
  Weight: 86 kg

DRUGS (12)
  1. VIOXX [Suspect]
     Indication: PAIN
     Route: 048
     Dates: start: 20040101, end: 20041004
  2. VIOXX [Suspect]
     Route: 048
     Dates: start: 20040101, end: 20041004
  3. AMBIEN [Concomitant]
     Route: 065
  4. DURAGESIC-100 [Concomitant]
     Route: 065
  5. LEVA PAK [Concomitant]
     Route: 065
  6. CIPRO [Concomitant]
     Route: 065
  7. DILTIAZEM [Concomitant]
     Route: 065
  8. IBUPROFEN [Concomitant]
     Route: 065
  9. CHLORTHALIDONE [Concomitant]
     Route: 065
  10. OXYCODONE AND ACETAMINOPHEN [Concomitant]
     Route: 065
  11. ATENOLOL MSD [Concomitant]
     Route: 065
  12. PEPCID [Concomitant]
     Route: 065

REACTIONS (8)
  - ABDOMINAL PAIN [None]
  - ATRIOVENTRICULAR BLOCK COMPLETE [None]
  - CEREBROVASCULAR ACCIDENT [None]
  - CHEST PAIN [None]
  - MYOCARDIAL INFARCTION [None]
  - OVERDOSE [None]
  - PAIN [None]
  - SYNCOPE [None]
